FAERS Safety Report 25794296 (Version 1)
Quarter: 2025Q3

REPORT INFORMATION
  Report Type: Spontaneous
  Country: GB (occurrence: GB)
  Receive Date: 20250912
  Receipt Date: 20250912
  Transmission Date: 20251020
  Serious: Yes (Hospitalization, Other)
  Sender: SANDOZ
  Company Number: GB-MLMSERVICE-20250826-PI620397-00336-3

PATIENT
  Age: 9 Year
  Sex: Female

DRUGS (1)
  1. ZOLEDRONIC ACID [Suspect]
     Active Substance: ZOLEDRONIC ACID
     Indication: Osteoporosis
     Route: 065
     Dates: start: 202112

REACTIONS (2)
  - Atypical femur fracture [Recovered/Resolved]
  - Product use issue [Unknown]

NARRATIVE: CASE EVENT DATE: 20240501
